FAERS Safety Report 4664709-7 (Version None)
Quarter: 2005Q2

REPORT INFORMATION
  Report Type: 
  Country: None (occurrence: None)
  Receive Date: 20050516
  Receipt Date: 20030919
  Transmission Date: 20051028
  Serious: Yes (Death, Hospitalization)
  Sender: FDA-Public Use
  Company Number: TCI2005A01625

PATIENT
  Age: 79 Year
  Sex: Male

DRUGS (6)
  1. ACTOS [Suspect]
     Indication: DIABETES MELLITUS NON-INSULIN-DEPENDENT
     Dosage: 15 MG(15 MG, 1 IN 1 D), PER ORAL
     Route: 048
     Dates: start: 20030919, end: 20050314
  2. BLOPRESS TABELTS12 (CANDESARTAN CILEXETIL) [Concomitant]
  3. BASEN TABLETS 0.3 (VOGLIBOSE) [Concomitant]
  4. GLYBURIDE [Concomitant]
  5. ATELEC (CLINIDIPINE) [Concomitant]
  6. NU-LOTAN (LOSARTAN POTASSIUM) [Concomitant]

REACTIONS (18)
  - ATRIAL FIBRILLATION [None]
  - BACK PAIN [None]
  - BLOOD GLUCOSE INCREASED [None]
  - CARDIAC FAILURE ACUTE [None]
  - CARDIAC FIBRILLATION [None]
  - CARDIOMEGALY [None]
  - DECREASED APPETITE [None]
  - GLYCOSYLATED HAEMOGLOBIN INCREASED [None]
  - HEART RATE INCREASED [None]
  - NASOPHARYNGITIS [None]
  - OEDEMA PERIPHERAL [None]
  - PAIN IN EXTREMITY [None]
  - PLEURAL EFFUSION [None]
  - PNEUMONIA [None]
  - PO2 DECREASED [None]
  - PULMONARY CONGESTION [None]
  - RESPIRATORY FAILURE [None]
  - WEIGHT INCREASED [None]
